FAERS Safety Report 9753468 (Version 1)
Quarter: 2013Q4

REPORT INFORMATION
  Report Type: Spontaneous
  Country: US (occurrence: US)
  Receive Date: 20131213
  Receipt Date: 20131213
  Transmission Date: 20140711
  Serious: No
  Sender: FDA-Public Use
  Company Number: US-TEVA-404086USA

PATIENT
  Age: 35 Year
  Sex: Female
  Weight: 63.56 kg

DRUGS (2)
  1. PARAGARD 380A [Suspect]
     Dates: start: 20120803
  2. AVONEX [Concomitant]
     Indication: MULTIPLE SCLEROSIS

REACTIONS (1)
  - Device expulsion [Not Recovered/Not Resolved]
